FAERS Safety Report 7499921-5 (Version None)
Quarter: 2011Q2

REPORT INFORMATION
  Report Type: 
  Country: None (occurrence: None)
  Receive Date: 20110524
  Receipt Date: 20110512
  Transmission Date: 20111010
  Serious: Yes (Other)
  Sender: FDA-Public Use
  Company Number: US-ASTRAZENECA-2010SE46007

PATIENT
  Age: 56 Year
  Sex: Female
  Weight: 102.1 kg

DRUGS (17)
  1. CRESTOR [Suspect]
     Route: 048
     Dates: end: 20100501
  2. CRESTOR [Suspect]
     Route: 048
     Dates: start: 20100501
  3. SEROQUEL [Suspect]
     Indication: DEPRESSION
     Route: 048
     Dates: start: 20100601
  4. NAPROXEN [Concomitant]
  5. EFFEXOR [Concomitant]
     Indication: DEPRESSION
  6. CRESTOR [Suspect]
     Route: 048
     Dates: start: 20100901
  7. SEROQUEL [Suspect]
     Indication: ANXIETY
     Route: 048
     Dates: start: 20100601
  8. SEROQUEL [Suspect]
     Route: 048
     Dates: start: 20090501, end: 20110501
  9. TRILIPIX [Concomitant]
     Indication: BLOOD TRIGLYCERIDES INCREASED
  10. NEXIUM [Suspect]
     Route: 048
  11. SEROQUEL [Suspect]
     Route: 048
     Dates: start: 20090501, end: 20110501
  12. CRESTOR [Suspect]
     Indication: HYPERCHOLESTEROLAEMIA
     Route: 048
     Dates: start: 20100201
  13. SEROQUEL [Suspect]
     Route: 048
  14. HYDROCODONE [Concomitant]
     Indication: PAIN
  15. ALPRAZOLAM [Concomitant]
     Indication: ANXIETY
  16. SEROQUEL [Suspect]
     Route: 048
  17. FLEXERIL [Concomitant]

REACTIONS (5)
  - KNEE ARTHROPLASTY [None]
  - DRUG DOSE OMISSION [None]
  - WEIGHT INCREASED [None]
  - ANXIETY [None]
  - HYPERCHOLESTEROLAEMIA [None]
